FAERS Safety Report 21564453 (Version 1)
Quarter: 2022Q4

REPORT INFORMATION
  Report Type: Spontaneous
  Country: US (occurrence: US)
  Receive Date: 20221108
  Receipt Date: 20221108
  Transmission Date: 20230113
  Serious: No
  Sender: FDA-Public Use
  Company Number: US-BIOGEN-2022BI01129709

PATIENT
  Age: 64 Year
  Sex: Female

DRUGS (5)
  1. VUMERITY [Suspect]
     Active Substance: DIROXIMEL FUMARATE
     Indication: Multiple sclerosis
     Dosage: STARTER DOSE
     Route: 050
     Dates: start: 20210625
  2. VUMERITY [Suspect]
     Active Substance: DIROXIMEL FUMARATE
     Route: 050
     Dates: start: 20210524, end: 20210530
  3. VUMERITY [Suspect]
     Active Substance: DIROXIMEL FUMARATE
     Route: 050
     Dates: start: 20210530, end: 202206
  4. VUMERITY [Suspect]
     Active Substance: DIROXIMEL FUMARATE
     Route: 050
     Dates: start: 202206
  5. VUMERITY [Suspect]
     Active Substance: DIROXIMEL FUMARATE
     Route: 050
     Dates: start: 20210625, end: 20220904

REACTIONS (3)
  - Neutrophil count decreased [Not Recovered/Not Resolved]
  - Blood test abnormal [Unknown]
  - Lymphocyte count decreased [Not Recovered/Not Resolved]

NARRATIVE: CASE EVENT DATE: 20220601
